FAERS Safety Report 6228926-7 (Version None)
Quarter: 2009Q2

REPORT INFORMATION
  Report Type: 
  Country: None (occurrence: None)
  Receive Date: 20090615
  Receipt Date: 20090603
  Transmission Date: 20091009
  Serious: Yes (Other)
  Sender: FDA-Public Use
  Company Number: CA-ROCHE-636072

PATIENT
  Age: 37 Year
  Sex: Male

DRUGS (6)
  1. INVIRASE [Suspect]
     Indication: DRUG USE FOR UNKNOWN INDICATION
     Dosage: DOSE: HARD GEL CAPSULE
     Route: 065
  2. FORTOVASE [Suspect]
     Indication: DRUG USE FOR UNKNOWN INDICATION
     Dosage: FORM: HARD GEL CAPSULE
     Route: 065
  3. VIRAMUNE [Suspect]
     Indication: DRUG USE FOR UNKNOWN INDICATION
     Route: 065
  4. ZERIT [Suspect]
     Indication: DRUG USE FOR UNKNOWN INDICATION
     Dosage: DRUG REPORTED AS: ZERIT=D4T
     Route: 065
  5. LAMIVUDINE [Suspect]
     Indication: DRUG USE FOR UNKNOWN INDICATION
     Dosage: DRUG REPORTED AS: LAMIVUDINE 3TC
     Route: 065
  6. NORVIR [Suspect]
     Indication: DRUG USE FOR UNKNOWN INDICATION
     Route: 065

REACTIONS (16)
  - BACTERIAL INFECTION [None]
  - BLOOD GLUCOSE INCREASED [None]
  - CLOSTRIDIUM DIFFICILE COLITIS [None]
  - DIABETES MELLITUS [None]
  - DIARRHOEA [None]
  - HIV TEST POSITIVE [None]
  - HYPERCHOLESTEROLAEMIA [None]
  - HYPERTRIGLYCERIDAEMIA [None]
  - LIPODYSTROPHY ACQUIRED [None]
  - LOWER RESPIRATORY TRACT INFECTION [None]
  - MUTAGENIC EFFECT [None]
  - NAUSEA [None]
  - PNEUMONIA [None]
  - SKIN CANCER [None]
  - THYROXINE DECREASED [None]
  - VIRAL INFECTION [None]
